FAERS Safety Report 18867156 (Version 8)
Quarter: 2021Q2

REPORT INFORMATION
  Report Type: Report from Study
  Country: US (occurrence: US)
  Receive Date: 20210209
  Receipt Date: 20210429
  Transmission Date: 20210717
  Serious: No
  Sender: FDA-Public Use
  Company Number: US-DSJP-DSU-2021-103440

PATIENT
  Age: 14 Year
  Sex: Male

DRUGS (10)
  1. PEXIDARTINIB [Suspect]
     Active Substance: PEXIDARTINIB
     Indication: SYNOVITIS
     Dosage: 400 MG, BID
     Route: 048
     Dates: start: 20210119
  2. EPIPEN [Concomitant]
     Active Substance: EPINEPHRINE
     Indication: HYPERSENSITIVITY
     Dosage: UNK, AS NEEDED
     Route: 042
     Dates: start: 20190724
  3. ATARAX [Concomitant]
     Active Substance: HYDROXYZINE HYDROCHLORIDE
     Indication: PRURITUS
     Dosage: 1DF, AS NEEDED
     Route: 048
     Dates: start: 20210121
  4. ALLEGRA [Concomitant]
     Active Substance: FEXOFENADINE HYDROCHLORIDE
     Indication: SEASONAL ALLERGY
     Dosage: 1DF, BID
     Route: 048
     Dates: start: 20190724
  5. PEXIDARTINIB [Suspect]
     Active Substance: PEXIDARTINIB
     Dosage: 400 MG, BID
     Route: 048
     Dates: start: 20210405
  6. XOPENEX [Concomitant]
     Active Substance: LEVALBUTEROL HYDROCHLORIDE
     Indication: ASTHMA
     Dosage: 45 MCG PRE?EXERCISE, PRN
     Dates: start: 20210316
  7. FLOVENT [Concomitant]
     Active Substance: FLUTICASONE PROPIONATE
     Indication: ASTHMA
     Dosage: 2 PUFF, BID
     Dates: start: 20190724
  8. PEXIDARTINIB [Suspect]
     Active Substance: PEXIDARTINIB
     Indication: GIANT CELL TUMOUR OF TENDON SHEATH
     Dosage: 400 MG, BID
     Route: 048
     Dates: start: 20210119
  9. CHOLECALCIFEROL [Concomitant]
     Active Substance: CHOLECALCIFEROL
     Dosage: 1DF, ONCE EVERY 1 WK
     Route: 048
     Dates: start: 20210216
  10. CHOLECALCIFEROL [Concomitant]
     Active Substance: CHOLECALCIFEROL
     Indication: VITAMIN D DEFICIENCY
     Dosage: UNK, ONCE EVERY 1 WK
     Route: 048
     Dates: start: 20210309

REACTIONS (18)
  - Skin hypopigmentation [Not Recovered/Not Resolved]
  - Drug ineffective [Unknown]
  - Aspartate aminotransferase increased [Unknown]
  - Burning sensation [Recovered/Resolved]
  - Blood alkaline phosphatase increased [Unknown]
  - Hair colour changes [Unknown]
  - Thirst [Recovered/Resolved]
  - Prothrombin time abnormal [Not Recovered/Not Resolved]
  - Rash [Recovered/Resolved]
  - Skin discolouration [Recovering/Resolving]
  - Vitamin D decreased [Not Recovered/Not Resolved]
  - Product dose omission issue [Recovered/Resolved]
  - Vitamin K decreased [Not Recovered/Not Resolved]
  - Headache [Recovered/Resolved]
  - Photosensitivity reaction [Unknown]
  - Contusion [Not Recovered/Not Resolved]
  - Taste disorder [Not Recovered/Not Resolved]
  - Decreased appetite [Not Recovered/Not Resolved]

NARRATIVE: CASE EVENT DATE: 2021
